FAERS Safety Report 6252456-X (Version None)
Quarter: 2009Q3

REPORT INFORMATION
  Report Type: 
  Country: None (occurrence: None)
  Receive Date: 20090701
  Receipt Date: 20090626
  Transmission Date: 20100115
  Serious: Yes (Hospitalization)
  Sender: FDA-Public Use
  Company Number: JP-BRISTOL-MYERS SQUIBB COMPANY-14682850

PATIENT
  Sex: Female

DRUGS (2)
  1. PARAPLATIN [Suspect]
     Indication: NEUROENDOCRINE CARCINOMA
     Dosage: THERAPY DURN-ONCE.
     Route: 042
     Dates: start: 20090623, end: 20090623
  2. ETOPOSIDE [Suspect]
     Indication: NEUROENDOCRINE CARCINOMA
     Dosage: FORM-INJ.
     Route: 042
     Dates: start: 20090623, end: 20090623

REACTIONS (1)
  - BRAIN OEDEMA [None]
